FAERS Safety Report 6671394-1 (Version None)
Quarter: 2010Q2

REPORT INFORMATION
  Report Type: 
  Country: None (occurrence: None)
  Receive Date: 20100407
  Receipt Date: 20100401
  Transmission Date: 20101027
  Serious: Yes (Hospitalization)
  Sender: FDA-Public Use
  Company Number: B0644763A

PATIENT
  Age: 16 Year
  Sex: Female

DRUGS (1)
  1. LAMICTAL CD [Suspect]

REACTIONS (8)
  - DRUG DISPENSING ERROR [None]
  - LYMPHADENOPATHY [None]
  - MUCOSAL EROSION [None]
  - OROPHARYNGEAL PAIN [None]
  - PYREXIA [None]
  - RASH PAPULAR [None]
  - SKIN DISORDER [None]
  - TOXIC EPIDERMAL NECROLYSIS [None]
